FAERS Safety Report 5106404-6 (Version None)
Quarter: 2006Q3

REPORT INFORMATION
  Report Type: 
  Country: None (occurrence: None)
  Receive Date: 20060918
  Receipt Date: 20060720
  Transmission Date: 20061208
  Serious: Yes (Disabling)
  Sender: FDA-Public Use
  Company Number: JP-ROCHE-456780

PATIENT
  Age: 29 Year
  Sex: Female
  Weight: 45 kg

DRUGS (2)
  1. TAMIFLU [Suspect]
     Route: 048
     Dates: start: 20060214, end: 20060216
  2. INFLUENZA VACCINE [Suspect]
     Indication: INFLUENZA IMMUNISATION
     Dosage: REPORTED AS INFLUENZA HA VACCINE.
     Route: 058
     Dates: start: 20060115, end: 20060115

REACTIONS (2)
  - MULTIPLE SCLEROSIS [None]
  - MYELITIS [None]
